FAERS Safety Report 7841291-4 (Version None)
Quarter: 2011Q4

REPORT INFORMATION
  Report Type: 
  Country: None (occurrence: None)
  Receive Date: 20111020
  Receipt Date: 20111004
  Transmission Date: 20120403
  Serious: Yes (Other)
  Sender: FDA-Public Use
  Company Number: 2011MA014738

PATIENT
  Sex: Female

DRUGS (1)
  1. METOCLOPRAMIDE [Suspect]
     Dates: start: 20030101, end: 20100101

REACTIONS (3)
  - ECONOMIC PROBLEM [None]
  - TARDIVE DYSKINESIA [None]
  - EMOTIONAL DISORDER [None]
